FAERS Safety Report 6645813-0 (Version None)
Quarter: 2010Q1

REPORT INFORMATION
  Report Type: 
  Country: None (occurrence: None)
  Receive Date: 20100318
  Receipt Date: 20100318
  Transmission Date: 20100710
  Serious: Yes (Other)
  Sender: FDA-Public Use
  Company Number: None

PATIENT
  Age: 14 Year
  Sex: Male
  Weight: 94 kg

DRUGS (2)
  1. HYDROXYCHLOROQUINE 200MG CVS [Suspect]
     Dosage: 1 1 PO
     Route: 048
     Dates: start: 20091231, end: 20100117
  2. HYDROXYCHLOROQUINE SULFATE [Concomitant]

REACTIONS (3)
  - OBSTRUCTIVE AIRWAYS DISORDER [None]
  - SWELLING FACE [None]
  - URTICARIA [None]
